FAERS Safety Report 18358692 (Version 3)
Quarter: 2022Q1

REPORT INFORMATION
  Report Type: Spontaneous
  Country: BR (occurrence: BR)
  Receive Date: 20201008
  Receipt Date: 20220221
  Transmission Date: 20220423
  Serious: Yes (Hospitalization, Other)
  Sender: FDA-Public Use
  Company Number: BR-TEVA-2020-BR-1835316

PATIENT
  Age: 35 Year
  Sex: Female

DRUGS (15)
  1. ACITRETIN [Suspect]
     Active Substance: ACITRETIN
     Indication: Erythrodermic psoriasis
     Dosage: 30 MILLIGRAM DAILY;
     Route: 065
  2. ACITRETIN [Suspect]
     Active Substance: ACITRETIN
     Indication: Erythrodermic psoriasis
     Dosage: 10 MILLIGRAM DAILY;
     Route: 065
  3. HYDROCORTISONE [Suspect]
     Active Substance: HYDROCORTISONE
     Indication: Erythrodermic psoriasis
     Route: 042
  4. CIPROFLOXACIN [Suspect]
     Active Substance: CIPROFLOXACIN
     Indication: Klebsiella infection
     Route: 042
  5. PREDNISONE [Suspect]
     Active Substance: PREDNISONE
     Indication: Erythrodermic psoriasis
     Dosage: 120 MILLIGRAM DAILY;
     Route: 065
  6. PREDNISONE [Suspect]
     Active Substance: PREDNISONE
     Indication: Erythrodermic psoriasis
     Dosage: 20 MILLIGRAM DAILY;
     Route: 065
  7. PROMETHAZINE [Concomitant]
     Active Substance: PROMETHAZINE HYDROCHLORIDE
     Indication: Erythema
     Route: 042
  8. PROMETHAZINE [Concomitant]
     Active Substance: PROMETHAZINE HYDROCHLORIDE
     Indication: Oedema
  9. DELTAMETHRIN [Concomitant]
     Active Substance: DELTAMETHRIN
     Indication: Erythema
     Route: 061
  10. DELTAMETHRIN [Concomitant]
     Active Substance: DELTAMETHRIN
     Indication: Oedema
  11. Potassium-permanganate [Concomitant]
     Indication: Erythema
     Route: 061
  12. Potassium-permanganate [Concomitant]
     Indication: Balneotherapy
  13. Potassium-permanganate [Concomitant]
     Indication: Oedema
  14. CYCLOSPORINE [Concomitant]
     Active Substance: CYCLOSPORINE
     Indication: Erythrodermic psoriasis
     Dosage: 100 MILLIGRAM DAILY;
     Route: 065
  15. CYCLOSPORINE [Concomitant]
     Active Substance: CYCLOSPORINE
     Indication: Erythrodermic psoriasis
     Dosage: 200 MILLIGRAM DAILY;
     Route: 065

REACTIONS (5)
  - Erythrodermic psoriasis [Recovering/Resolving]
  - Liver function test abnormal [Recovering/Resolving]
  - Rebound effect [Recovering/Resolving]
  - Pathogen resistance [Unknown]
  - Condition aggravated [Recovering/Resolving]
